FAERS Safety Report 6151900-6 (Version None)
Quarter: 2009Q2

REPORT INFORMATION
  Report Type: 
  Country: None (occurrence: None)
  Receive Date: 20090410
  Receipt Date: 20090406
  Transmission Date: 20091009
  Serious: Yes (Hospitalization, Other)
  Sender: FDA-Public Use
  Company Number: US-AMGEN-QUU313488

PATIENT
  Sex: Female
  Weight: 58 kg

DRUGS (10)
  1. EPOGEN [Suspect]
     Indication: DIALYSIS
     Route: 058
     Dates: start: 19940401
  2. ARANESP [Suspect]
     Indication: DIALYSIS
     Route: 065
     Dates: start: 20040101, end: 20050101
  3. CLONIDINE [Concomitant]
     Route: 048
     Dates: start: 20080911
  4. DIATX [Concomitant]
     Route: 048
     Dates: start: 20081018
  5. KEPPRA [Concomitant]
     Route: 048
     Dates: start: 20080501
  6. LORTAB [Concomitant]
     Route: 048
     Dates: start: 20080501
  7. MAGNESIUM OXIDE [Concomitant]
     Route: 048
     Dates: start: 20080501
  8. RENAGEL [Concomitant]
     Dates: start: 20080521
  9. SENSIPAR [Concomitant]
     Route: 048
     Dates: start: 20080911
  10. ZEMPLAR [Concomitant]
     Route: 048
     Dates: start: 20080826

REACTIONS (14)
  - BLOOD IRON INCREASED [None]
  - CARDIAC MURMUR [None]
  - CLOSTRIDIUM DIFFICILE COLITIS [None]
  - DEEP VEIN THROMBOSIS [None]
  - EPISTAXIS [None]
  - FLUID OVERLOAD [None]
  - HERPES OESOPHAGITIS [None]
  - HYPOALBUMINAEMIA [None]
  - HYPOTENSION [None]
  - PERICARDIAL EFFUSION [None]
  - PERITONITIS [None]
  - PNEUMONIA [None]
  - STAPHYLOCOCCAL INFECTION [None]
  - THERAPEUTIC RESPONSE DECREASED [None]
